FAERS Safety Report 25120943 (Version 1)
Quarter: 2025Q1

REPORT INFORMATION
  Report Type: Report from Study
  Country: US (occurrence: US)
  Receive Date: 20250326
  Receipt Date: 20250326
  Transmission Date: 20250409
  Serious: Yes (Other)
  Sender: ABBVIE
  Company Number: US-ABBVIE-6134277

PATIENT
  Age: 57 Year
  Sex: Female

DRUGS (1)
  1. SKYRIZI [Suspect]
     Active Substance: RISANKIZUMAB-RZAA
     Indication: Psoriatic arthropathy
     Route: 058
     Dates: start: 202408

REACTIONS (5)
  - Cardiac stress test abnormal [Recovering/Resolving]
  - Influenza [Recovering/Resolving]
  - Thyroid function test abnormal [Unknown]
  - Hypertension [Recovering/Resolving]
  - Thyroid mass [Recovering/Resolving]

NARRATIVE: CASE EVENT DATE: 20250201
